FAERS Safety Report 7947899-X (Version None)
Quarter: 2011Q4

REPORT INFORMATION
  Report Type: 
  Country: None (occurrence: None)
  Receive Date: 20111125
  Receipt Date: 20111117
  Transmission Date: 20120403
  Serious: Yes (Hospitalization)
  Sender: FDA-Public Use
  Company Number: JPI-P-018254

PATIENT
  Age: 59 Year
  Sex: Female

DRUGS (2)
  1. XYREM [Suspect]
     Indication: NARCOLEPSY
     Dosage: 6 GM (3 GM, 2 IN 1 D), ORAL 9 GM (4.5 GM, 2 IN 1D), ORAL
     Route: 048
     Dates: start: 20070214, end: 20070101
  2. XYREM [Suspect]
     Indication: NARCOLEPSY
     Dosage: 6 GM (3 GM, 2 IN 1 D), ORAL 9 GM (4.5 GM, 2 IN 1D), ORAL
     Route: 048
     Dates: start: 20070605

REACTIONS (3)
  - DEPRESSION [None]
  - SCHIZOAFFECTIVE DISORDER [None]
  - CONDITION AGGRAVATED [None]
